FAERS Safety Report 19313250 (Version 2)
Quarter: 2021Q4

REPORT INFORMATION
  Report Type: Spontaneous
  Country: IT (occurrence: IT)
  Receive Date: 20210527
  Receipt Date: 20211110
  Transmission Date: 20220303
  Serious: Yes (Death, Hospitalization, Other)
  Sender: FDA-Public Use
  Company Number: IT-AUROBINDO-AUR-APL-2021-020744

PATIENT
  Age: 40 Year
  Sex: Male

DRUGS (2)
  1. QUETIAPINE [Suspect]
     Active Substance: QUETIAPINE
     Indication: Psychotic disorder
     Dosage: UNK (2 PLUS 300MG IN THE EVENING)
     Route: 065
  2. CLOZAPINE [Suspect]
     Active Substance: CLOZAPINE
     Indication: Psychotic disorder
     Dosage: 15 GTT DROPS, (EVENING)
     Route: 065

REACTIONS (5)
  - Conduction disorder [Fatal]
  - Ileus paralytic [Unknown]
  - Abdominal pain [Unknown]
  - Blood electrolytes abnormal [Unknown]
  - Constipation [Unknown]
